FAERS Safety Report 7764101-2 (Version None)
Quarter: 2011Q3

REPORT INFORMATION
  Report Type: 
  Country: None (occurrence: None)
  Receive Date: 20110921
  Receipt Date: 20110915
  Transmission Date: 20111222
  Serious: Yes (Death, Other)
  Sender: FDA-Public Use
  Company Number: US-NAPPMUNDI-USA-2011-0071858

PATIENT
  Age: 22 Year
  Sex: Male

DRUGS (6)
  1. OXYMORPHONE [Suspect]
     Indication: DRUG ABUSE
  2. MORPHINE SULFATE [Suspect]
     Indication: DRUG ABUSE
  3. HYDROMORPHONE HYDROCHLORIDE [Suspect]
     Indication: DRUG ABUSE
  4. OXYCODONE HCL [Suspect]
     Indication: DRUG ABUSE
  5. HYDROCODONE BITARTRATE [Suspect]
     Indication: DRUG ABUSE
  6. ALPRAZOLAM [Suspect]
     Indication: DRUG ABUSE

REACTIONS (9)
  - DEPRESSED LEVEL OF CONSCIOUSNESS [None]
  - UNRESPONSIVE TO STIMULI [None]
  - PULMONARY OEDEMA [None]
  - DRUG ABUSE [None]
  - RESPIRATORY ARREST [None]
  - SYNCOPE [None]
  - LOSS OF CONSCIOUSNESS [None]
  - PNEUMONIA ASPIRATION [None]
  - MULTIPLE DRUG OVERDOSE ACCIDENTAL [None]
